FAERS Safety Report 15419460 (Version 1)
Quarter: 2018Q3

REPORT INFORMATION
  Report Type: Spontaneous
  Country: US (occurrence: US)
  Receive Date: 20180924
  Receipt Date: 20180924
  Transmission Date: 20181010
  Serious: No
  Sender: FDA-Public Use
  Company Number: US-SA-2018SA205248

PATIENT
  Age: 47 Year
  Sex: Female

DRUGS (2)
  1. ICY HOT MEDICATED NO MESS APPLICATOR [Suspect]
     Active Substance: MENTHOL
     Dosage: UNK
     Dates: start: 201711, end: 201711
  2. LISINOPRIL. [Concomitant]
     Active Substance: LISINOPRIL
     Indication: HYPERTENSION
     Dosage: 5 MG, QD
     Dates: start: 201610

REACTIONS (3)
  - Blister [Unknown]
  - Chemical burn [Unknown]
  - Scab [Unknown]

NARRATIVE: CASE EVENT DATE: 201711
